FAERS Safety Report 4767977-6 (Version None)
Quarter: 2005Q3

REPORT INFORMATION
  Report Type: 
  Country: None (occurrence: None)
  Receive Date: 20050913
  Receipt Date: 20050907
  Transmission Date: 20060218
  Serious: Yes (Life-Threatening)
  Sender: FDA-Public Use
  Company Number: ES-MERCK-0509ESP00009

PATIENT
  Age: 83 Year
  Sex: Female

DRUGS (1)
  1. PRIMAXIN [Suspect]
     Route: 042
     Dates: start: 20050301, end: 20050301

REACTIONS (3)
  - CONVULSION [None]
  - CYANOSIS [None]
  - HYPOKINESIA [None]
